FAERS Safety Report 24263968 (Version 1)
Quarter: 2024Q3

REPORT INFORMATION
  Report Type: Spontaneous
  Country: US (occurrence: None)
  Receive Date: 20240828
  Receipt Date: 20240828
  Transmission Date: 20241017
  Serious: Yes (Life-Threatening, Hospitalization, Other)
  Sender: Public
  Company Number: None

PATIENT
  Age: 39 Year
  Weight: 85.5 kg

DRUGS (2)
  1. DOVATO [Suspect]
     Active Substance: DOLUTEGRAVIR SODIUM\LAMIVUDINE
     Indication: Product substitution
     Dosage: FREQUENCY : DAILY;?OTHER ROUTE : HIV;?
     Route: 050
  2. DOVATO [Concomitant]
     Active Substance: DOLUTEGRAVIR SODIUM\LAMIVUDINE

REACTIONS (6)
  - Skin infection [None]
  - Staphylococcal infection [None]
  - Fungal infection [None]
  - Product label issue [None]
  - Suspected counterfeit product [None]
  - Biopsy [None]

NARRATIVE: CASE EVENT DATE: 20240809
